FAERS Safety Report 4299066-1 (Version None)
Quarter: 2004Q1

REPORT INFORMATION
  Report Type: 
  Country: None (occurrence: None)
  Receive Date: 20040217
  Receipt Date: 20040212
  Transmission Date: 20041129
  Serious: Yes (Hospitalization)
  Sender: FDA-Public Use
  Company Number: 200410452GDS

PATIENT
  Age: 90 Year
  Sex: Male

DRUGS (3)
  1. ASPIRIN [Suspect]
     Indication: PROSTATE CANCER
  2. ESTROGEN (FOSFESTROL) (FOSFESTROL) [Suspect]
     Indication: PROSTATE CANCER
  3. WARFARIN POTASSIUM [Suspect]
     Indication: PROSTATE CANCER

REACTIONS (6)
  - CARDIAC VALVE REPLACEMENT COMPLICATION [None]
  - DYSPNOEA EXERTIONAL [None]
  - HAEMATURIA [None]
  - INTRACARDIAC THROMBUS [None]
  - PLEURAL EFFUSION [None]
  - PULMONARY CONGESTION [None]
